FAERS Safety Report 5889481-4 (Version None)
Quarter: 2008Q3

REPORT INFORMATION
  Report Type: 
  Country: None (occurrence: None)
  Receive Date: 20080919
  Receipt Date: 20080909
  Transmission Date: 20090109
  Serious: Yes (Hospitalization)
  Sender: FDA-Public Use
  Company Number: ES-ELI_LILLY_AND_COMPANY-ES200809002381

PATIENT
  Age: 81 Year
  Sex: Male

DRUGS (2)
  1. FORTEO [Suspect]
     Indication: OSTEOPOROSIS
     Dosage: 20 UG, UNKNOWN
     Route: 058
     Dates: start: 20080820, end: 20080901
  2. SINTROM [Concomitant]
     Dosage: UNK, UNKNOWN
     Route: 065
     Dates: end: 20080901

REACTIONS (2)
  - DIVERTICULITIS [None]
  - POLYP [None]
